FAERS Safety Report 7225274-3 (Version None)
Quarter: 2011Q1

REPORT INFORMATION
  Report Type: 
  Country: None (occurrence: None)
  Receive Date: 20110113
  Receipt Date: 20110104
  Transmission Date: 20110831
  Serious: Yes (Other)
  Sender: FDA-Public Use
  Company Number: B0693224A

PATIENT

DRUGS (3)
  1. MELPHALAN [Suspect]
     Indication: SOFT TISSUE NEOPLASM
  2. LOCAL ANESTHESIA [Concomitant]
     Route: 061
  3. ELOHAES [Concomitant]

REACTIONS (2)
  - TOXICITY TO VARIOUS AGENTS [None]
  - ANGIOPATHY [None]
